FAERS Safety Report 8030646-3 (Version None)
Quarter: 2012Q1

REPORT INFORMATION
  Report Type: 
  Country: None (occurrence: None)
  Receive Date: 20120109
  Receipt Date: 20120102
  Transmission Date: 20120608
  Serious: Yes (Other)
  Sender: FDA-Public Use
  Company Number: PHHY2011BR43894

PATIENT
  Sex: Female
  Weight: 90 kg

DRUGS (5)
  1. FORMOTEROL FUMARATE [Suspect]
     Dosage: ALTERANATE DAYS, 1 TIME DAILY
  2. FORMOTEROL FUMARATE [Suspect]
     Dosage: 1 TIME DAILY
  3. ATROVENT [Concomitant]
  4. FORMOTEROL FUMARATE [Suspect]
     Indication: ASTHMA
     Dosage: EVERY 12 HOURS
  5. BEROTEC [Concomitant]
     Dosage: 1 INHALATION EVERY 6 HOURS

REACTIONS (5)
  - DEVICE MALFUNCTION [None]
  - INCORRECT ROUTE OF DRUG ADMINISTRATION [None]
  - PNEUMONIA [None]
  - ASTHMA [None]
  - BEDRIDDEN [None]
